FAERS Safety Report 5637098-9 (Version None)
Quarter: 2008Q1

REPORT INFORMATION
  Report Type: 
  Country: None (occurrence: None)
  Receive Date: 20080225
  Receipt Date: 20071016
  Transmission Date: 20080703
  Serious: No
  Sender: FDA-Public Use
  Company Number: US-BRISTOL-MYERS SQUIBB COMPANY-13933593

PATIENT
  Age: 70 Year
  Sex: Female

DRUGS (3)
  1. GLUCOPHAGE [Suspect]
     Route: 048
     Dates: end: 20070101
  2. METFORMIN HCL [Suspect]
     Dosage: METFORMIN HCL TABLET, 500MG.
     Route: 048
     Dates: end: 20070101
  3. GLIMEPIRIDE [Suspect]
     Route: 048
     Dates: end: 20070101

REACTIONS (2)
  - BLOOD GLUCOSE INCREASED [None]
  - DRUG INEFFECTIVE [None]
